FAERS Safety Report 6460591-6 (Version None)
Quarter: 2009Q4

REPORT INFORMATION
  Report Type: 
  Country: None (occurrence: None)
  Receive Date: 20091130
  Receipt Date: 20091125
  Transmission Date: 20100525
  Serious: Yes (Death)
  Sender: FDA-Public Use
  Company Number: BR-ABBOTT-09P-020-0610751-00

PATIENT
  Weight: 60 kg

DRUGS (2)
  1. HUMIRA [Suspect]
     Indication: RHEUMATOID ARTHRITIS
     Dates: start: 20080101
  2. UNKNOWN [Concomitant]
     Indication: RHEUMATOID ARTHRITIS

REACTIONS (5)
  - CARDIO-RESPIRATORY ARREST [None]
  - HEART VALVE REPLACEMENT [None]
  - IMMUNODEFICIENCY [None]
  - IMPAIRED HEALING [None]
  - INFECTION [None]
